FAERS Safety Report 8197985-7 (Version None)
Quarter: 2012Q1

REPORT INFORMATION
  Report Type: 
  Country: None (occurrence: None)
  Receive Date: 20120309
  Receipt Date: 20120301
  Transmission Date: 20120608
  Serious: Yes (Hospitalization)
  Sender: FDA-Public Use
  Company Number: JP-VERTEX PHARMACEUTICALS INC.-AE-2012-003193

PATIENT
  Age: 67 Year
  Sex: Female

DRUGS (9)
  1. PEG-INTRON [Concomitant]
     Indication: HEPATITIS C
     Route: 058
     Dates: start: 20120116
  2. ALLEGRA [Concomitant]
  3. CARVEDILOL [Concomitant]
  4. TELAVIC (TELAPREVIR) [Suspect]
     Route: 048
     Dates: start: 20120224
  5. REBETOL [Concomitant]
     Indication: HEPATITIS C
     Route: 048
     Dates: start: 20120116
  6. DIOVAN [Concomitant]
  7. TRICHLORMETHIAZIDE [Concomitant]
  8. RIKKUNSHI-TO [Concomitant]
  9. TELAVIC (TELAPREVIR) [Suspect]
     Indication: HEPATITIS C
     Route: 048
     Dates: start: 20120116, end: 20120223

REACTIONS (3)
  - NAUSEA [None]
  - BLOOD URIC ACID INCREASED [None]
  - BLOOD CREATININE INCREASED [None]
